FAERS Safety Report 5808419-9 (Version None)
Quarter: 2008Q3

REPORT INFORMATION
  Report Type: 
  Country: None (occurrence: None)
  Receive Date: 20080714
  Receipt Date: 20080704
  Transmission Date: 20090109
  Serious: Yes (Death)
  Sender: FDA-Public Use
  Company Number: CHNY2008JP02387

PATIENT
  Age: 50 Year
  Sex: Female

DRUGS (2)
  1. VOLTAREN [Suspect]
     Indication: BACK PAIN
     Dosage: 3 DF DAILY
     Route: 061
     Dates: start: 20080616
  2. BETAMETHASONE [Concomitant]

REACTIONS (2)
  - BLOOD PRESSURE DECREASED [None]
  - BREAST CANCER [None]
